FAERS Safety Report 11570152 (Version 3)
Quarter: 2020Q4

REPORT INFORMATION
  Report Type: Report from Study
  Country: US (occurrence: US)
  Receive Date: 20150929
  Receipt Date: 20201024
  Transmission Date: 20210113
  Serious: Yes (Hospitalization)
  Sender: FDA-Public Use
  Company Number: US-GILEAD-2015-0174260

PATIENT
  Age: 27 Year
  Sex: Male

DRUGS (4)
  1. AMBRISENTAN [Suspect]
     Active Substance: AMBRISENTAN
     Indication: PULMONARY HYPERTENSION
     Dosage: 10 MG, QD
     Route: 065
     Dates: start: 20110408, end: 2011
  2. AMBRISENTAN [Suspect]
     Active Substance: AMBRISENTAN
     Indication: PNEUMONIA
  3. AMBRISENTAN [Suspect]
     Active Substance: AMBRISENTAN
     Indication: UPPER RESPIRATORY TRACT INFECTION
  4. REMODULIN [Concomitant]
     Active Substance: TREPROSTINIL

REACTIONS (2)
  - Echocardiogram abnormal [Unknown]
  - Upper respiratory tract infection [Unknown]
